FAERS Safety Report 5198377-5 (Version None)
Quarter: 2006Q4

REPORT INFORMATION
  Report Type: 
  Country: None (occurrence: None)
  Receive Date: 20061228
  Receipt Date: 20061228
  Transmission Date: 20070319
  Serious: No
  Sender: FDA-Public Use
  Company Number: None

PATIENT
  Age: 18 Year
  Sex: Female
  Weight: 48.5349 kg

DRUGS (2)
  1. PROMETHAZINE [Suspect]
     Indication: NAUSEA
     Dosage: 12.5MG Q4H PRN IV DRIP
     Route: 041
     Dates: start: 20061227, end: 20061227
  2. PROMETHAZINE [Suspect]
     Indication: VOMITING
     Dosage: 12.5MG Q4H PRN IV DRIP
     Route: 041
     Dates: start: 20061227, end: 20061227

REACTIONS (2)
  - ERYTHEMA [None]
  - INFUSION SITE ERYTHEMA [None]
